FAERS Safety Report 6147419-9 (Version None)
Quarter: 2009Q2

REPORT INFORMATION
  Report Type: 
  Country: None (occurrence: None)
  Receive Date: 20090406
  Receipt Date: 20090326
  Transmission Date: 20091009
  Serious: No
  Sender: FDA-Public Use
  Company Number: 20085088

PATIENT
  Sex: Female

DRUGS (1)
  1. LIORESAL [Suspect]
     Indication: MUSCLE SPASTICITY
     Dosage: MCG, DAILY, INTRATHECAL
     Route: 037

REACTIONS (8)
  - CATHETER RELATED COMPLICATION [None]
  - DRUG DELIVERY SYSTEM MALFUNCTION [None]
  - GRANULOMA [None]
  - INFLAMMATION [None]
  - MASS [None]
  - MUSCULAR WEAKNESS [None]
  - PARALYSIS [None]
  - SPINAL LAMINECTOMY [None]
